FAERS Safety Report 5257827-6 (Version None)
Quarter: 2007Q1

REPORT INFORMATION
  Report Type: 
  Country: None (occurrence: None)
  Receive Date: 20061220
  Receipt Date: 20060914
  Transmission Date: 20070707
  Serious: No
  Sender: FDA-Public Use
  Company Number: 2006RL000334

PATIENT
  Sex: Male

DRUGS (1)
  1. OMACOR [Suspect]
     Indication: DRUG USE FOR UNKNOWN INDICATION
     Dosage: 1 GM; TID; PO
     Route: 048
     Dates: start: 20060801

REACTIONS (2)
  - FEELING ABNORMAL [None]
  - MENTAL IMPAIRMENT [None]
